FAERS Safety Report 7967379-5 (Version None)
Quarter: 2011Q4

REPORT INFORMATION
  Report Type: 
  Country: None (occurrence: None)
  Receive Date: 20111206
  Receipt Date: 20111126
  Transmission Date: 20120403
  Serious: Yes (Other)
  Sender: FDA-Public Use
  Company Number: TIR-00755

PATIENT
  Sex: Female

DRUGS (2)
  1. TIROSINT [Suspect]
     Dosage: 13 MCG, ONCE DAILY, ORAL
     Route: 048
  2. THYROID TAB [Suspect]
     Dosage: 3 PILLS, 5GR, 3 TIMES A WEEK; 2 PILLS, 5GR, TWICE A WEEK

REACTIONS (12)
  - EYE PAIN [None]
  - BACK PAIN [None]
  - CONDITION AGGRAVATED [None]
  - NAUSEA [None]
  - FEELING ABNORMAL [None]
  - METABOLIC DISORDER [None]
  - VISUAL IMPAIRMENT [None]
  - GLOSSODYNIA [None]
  - TOXICITY TO VARIOUS AGENTS [None]
  - BURNING SENSATION [None]
  - EYE IRRITATION [None]
  - DIZZINESS [None]
